FAERS Safety Report 20728779 (Version 1)
Quarter: 2022Q2

REPORT INFORMATION
  Report Type: Spontaneous
  Country: PT (occurrence: PT)
  Receive Date: 20220420
  Receipt Date: 20220420
  Transmission Date: 20220720
  Serious: Yes (Other)
  Sender: FDA-Public Use
  Company Number: None

PATIENT
  Age: 67 Year
  Sex: Female
  Weight: 64 kg

DRUGS (4)
  1. CIPROFLOXACIN [Suspect]
     Active Substance: CIPROFLOXACIN
     Indication: Urinary tract infection
     Dosage: 1000 MILLIGRAM DAILY; 2 PILLS A DAY, ROUTE OF ADMINISTRATION : ORAL (VIA) ,CIPROFLOXACIN RATIOPHARM
     Route: 048
     Dates: start: 20220111, end: 20220114
  2. LEVOTHYROXINE SODIUM [Concomitant]
     Active Substance: LEVOTHYROXINE SODIUM
     Indication: Product used for unknown indication
     Dosage: 25 MICROGRAM DAILY; 1 PILL A DAY, ROUTE OF ADMINISTRATION : ORAL ,SUBTANCE NAME: LEVOTHYROXINE SODIU
     Route: 048
  3. ESCITALOPRAM [Concomitant]
     Active Substance: ESCITALOPRAM OXALATE
     Indication: Product used for unknown indication
     Dosage: 5 MILLIGRAM DAILY; HALF A TABLET A DAY (MORNING), STRENGTH : 10 MG, UNIT DOSE : 5 MG, ROUTE OF ADMIN
     Route: 048
  4. SOLIFENACIN [Concomitant]
     Active Substance: SOLIFENACIN
     Indication: Product used for unknown indication
     Dosage: ROUTE OF ADMINISTRATION : ORAL ,SUBTANCE NAME: SOLIFENACIN, STRENGTH :5 MG
     Route: 048

REACTIONS (2)
  - Erythema [Recovered/Resolved]
  - Palpitations [Recovered/Resolved]

NARRATIVE: CASE EVENT DATE: 20220114
